FAERS Safety Report 8840429 (Version 1)
Quarter: 2012Q4

REPORT INFORMATION
  Report Type: 
  Country: DE (occurrence: CA)
  Receive Date: 20121015
  Receipt Date: 20121015
  Transmission Date: 20130627
  Serious: Yes (Hospitalization)
  Sender: FDA-Public Use
  Company Number: CA-FRI-1000039376

PATIENT
  Sex: Male

DRUGS (1)
  1. ROFLUMILAST [Suspect]
     Dosage: 500 mcg
     Route: 048
     Dates: start: 2012, end: 20121001

REACTIONS (2)
  - Dyspnoea [Unknown]
  - Feeling abnormal [Unknown]
